FAERS Safety Report 8594259-7 (Version None)
Quarter: 2012Q3

REPORT INFORMATION
  Report Type: 
  Country: None (occurrence: None)
  Receive Date: 20120815
  Receipt Date: 20120807
  Transmission Date: 20120928
  Serious: Yes (Other)
  Sender: FDA-Public Use
  Company Number: CA-AMGEN-CANSP2011037561

PATIENT
  Age: 44 Year
  Sex: Female

DRUGS (8)
  1. HUMIRA [Suspect]
     Dosage: UNK
     Route: 058
  2. GABAPENTIN [Concomitant]
     Dosage: UNK
     Route: 065
  3. PIROXICAM [Concomitant]
     Dosage: UNK
     Route: 065
  4. PREDNISONE TAB [Concomitant]
     Dosage: UNK
     Route: 065
  5. OXYCODONE [Concomitant]
     Dosage: UNK
     Route: 065
  6. REMICADE [Concomitant]
     Dosage: UNK
     Route: 042
  7. ENBREL [Suspect]
     Indication: PRODUCT USED FOR UNKNOWN INDICATION
     Dosage: 50 MG, QWK
     Route: 058
  8. LANSOPRAZOLE [Concomitant]
     Dosage: UNK
     Route: 048

REACTIONS (8)
  - MUSCULAR WEAKNESS [None]
  - VISION BLURRED [None]
  - MULTIPLE SCLEROSIS [None]
  - BLINDNESS [None]
  - HYPOAESTHESIA [None]
  - MUSCULOSKELETAL PAIN [None]
  - DIPLOPIA [None]
  - GAIT DISTURBANCE [None]
